FAERS Safety Report 8567798-2 (Version None)
Quarter: 2012Q3

REPORT INFORMATION
  Report Type: 
  Country: None (occurrence: None)
  Receive Date: 20120803
  Receipt Date: 20120726
  Transmission Date: 20120928
  Serious: Yes (Other)
  Sender: FDA-Public Use
  Company Number: RO-ROCHE-1093403

PATIENT
  Sex: Male
  Weight: 72 kg

DRUGS (2)
  1. METHOTREXATE [Concomitant]
     Indication: RHEUMATOID ARTHRITIS
     Route: 048
     Dates: start: 20030530
  2. MABTHERA [Suspect]
     Indication: RHEUMATOID ARTHRITIS
     Route: 042
     Dates: start: 20101028

REACTIONS (4)
  - MUSCULOSKELETAL STIFFNESS [None]
  - ARTHRALGIA [None]
  - ERECTILE DYSFUNCTION [None]
  - ARTHRITIS [None]
